FAERS Safety Report 20919703 (Version 2)
Quarter: 2022Q2

REPORT INFORMATION
  Report Type: Spontaneous
  Country: US (occurrence: US)
  Receive Date: 20220606
  Receipt Date: 20220610
  Transmission Date: 20220721
  Serious: No
  Sender: FDA-Public Use
  Company Number: US-PFIZER INC-202200788479

PATIENT
  Age: 66 Year
  Sex: Female

DRUGS (1)
  1. PAXLOVID [Suspect]
     Active Substance: NIRMATRELVIR\RITONAVIR
     Indication: COVID-19 treatment
     Dosage: [PF-07321332 300 MG]/[RITONAVIR 100 MG]; 2X/DAY
     Dates: start: 20220601

REACTIONS (4)
  - Chest pain [Recovering/Resolving]
  - Headache [Recovering/Resolving]
  - Dyspepsia [Recovering/Resolving]
  - Eructation [Unknown]

NARRATIVE: CASE EVENT DATE: 20220601
